FAERS Safety Report 7133384-4 (Version None)
Quarter: 2010Q4

REPORT INFORMATION
  Report Type: 
  Country: None (occurrence: None)
  Receive Date: 20101202
  Receipt Date: 20101118
  Transmission Date: 20110411
  Serious: Yes (Other)
  Sender: FDA-Public Use
  Company Number: GB-GENENTECH-310295

PATIENT
  Sex: Female

DRUGS (2)
  1. XOLAIR [Suspect]
     Indication: ASTHMA
     Dosage: UNK
     Dates: start: 20060709
  2. XOLAIR [Suspect]
     Dosage: UNK
     Dates: start: 20070924

REACTIONS (2)
  - OEDEMA MOUTH [None]
  - WHEEZING [None]
